FAERS Safety Report 24705249 (Version 1)
Quarter: 2024Q4

REPORT INFORMATION
  Report Type: Spontaneous
  Country: JP (occurrence: JP)
  Receive Date: 20241206
  Receipt Date: 20241206
  Transmission Date: 20250115
  Serious: Yes (Other)
  Sender: ACCORD
  Company Number: JP-MLMSERVICE-20241030-PI244925-00249-1

PATIENT
  Age: 72 Year
  Sex: Male

DRUGS (2)
  1. OXALIPLATIN [Suspect]
     Active Substance: OXALIPLATIN
     Indication: Adenocarcinoma of appendix
     Dosage: OXALIPLATIN (130 MG/M2) ADMINISTERED ON DAY 1
  2. CAPECITABINE [Concomitant]
     Active Substance: CAPECITABINE
     Indication: Adenocarcinoma of appendix
     Dosage: ADMINISTERED CAPECITABINE (2000 MG/M2/DAY)
     Route: 048

REACTIONS (1)
  - First bite syndrome [Recovered/Resolved]
